FAERS Safety Report 12891948 (Version 1)
Quarter: 2016Q4

REPORT INFORMATION
  Report Type: Spontaneous
  Country: GB (occurrence: GB)
  Receive Date: 20161028
  Receipt Date: 20161028
  Transmission Date: 20170207
  Serious: Yes (Hospitalization)
  Sender: FDA-Public Use
  Company Number: GB-STRIDES ARCOLAB LIMITED-2016SP016310

PATIENT

DRUGS (1)
  1. IBUPROFEN. [Suspect]
     Active Substance: IBUPROFEN
     Indication: PYREXIA
     Dosage: UNK

REACTIONS (4)
  - Renal failure [Recovered/Resolved]
  - Ureteric obstruction [Recovered/Resolved]
  - Renal papillary necrosis [Recovered/Resolved]
  - Hydronephrosis [Recovered/Resolved]
